FAERS Safety Report 5062270-9 (Version None)
Quarter: 2006Q3

REPORT INFORMATION
  Report Type: 
  Country: None (occurrence: None)
  Receive Date: 20060703
  Receipt Date: 20051017
  Transmission Date: 20061208
  Serious: No
  Sender: FDA-Public Use
  Company Number: 2005S1010186

PATIENT
  Age: 35 Year
  Sex: Male
  Weight: 122.0176 kg

DRUGS (11)
  1. CLOZAPINE [Suspect]
     Indication: PSYCHOTIC DISORDER
     Dosage: SEE IMAGE
     Route: 048
     Dates: start: 20050601
  2. CLOZAPINE [Suspect]
     Indication: PSYCHOTIC DISORDER
     Dosage: SEE IMAGE
     Route: 048
     Dates: start: 20050601
  3. VALPROIC ACID [Suspect]
     Indication: PSYCHOTIC DISORDER
     Dosage: 500 MG ; QD; PO
     Route: 048
  4. CHLORPROMAZINE [Suspect]
     Indication: PSYCHOTIC DISORDER
     Dosage: 1000 MG;QD;PO
     Route: 048
  5. BENZTROPEINE [Concomitant]
  6. GLIPIZIDE [Concomitant]
  7. TOCOPHEROL CONCENTRATE CAP [Concomitant]
  8. LACTULOSE [Concomitant]
  9. DOCUSATE [Concomitant]
  10. METOPROLOL TARTRATE [Concomitant]
  11. FERROUS FUMARATE [Concomitant]

REACTIONS (1)
  - GRANULOCYTOPENIA [None]
